FAERS Safety Report 12078030 (Version 2)
Quarter: 2016Q1

REPORT INFORMATION
  Report Type: Spontaneous
  Country: US (occurrence: US)
  Receive Date: 20160215
  Receipt Date: 20160307
  Transmission Date: 20160526
  Serious: No
  Sender: FDA-Public Use
  Company Number: US-ALLERGAN-1612112US

PATIENT
  Age: 72 Year
  Sex: Female

DRUGS (1)
  1. RESTASIS [Suspect]
     Active Substance: CYCLOSPORINE
     Indication: DRY EYE
     Dosage: 2 GTT, BID
     Route: 047
     Dates: start: 2011

REACTIONS (3)
  - Therapeutic response decreased [Unknown]
  - Dry eye [Not Recovered/Not Resolved]
  - Multiple use of single-use product [Unknown]

NARRATIVE: CASE EVENT DATE: 2014
